FAERS Safety Report 22176297 (Version 2)
Quarter: 2023Q2

REPORT INFORMATION
  Report Type: Report from Study
  Country: US (occurrence: US)
  Receive Date: 20230405
  Receipt Date: 20230414
  Transmission Date: 20230722
  Serious: Yes (Hospitalization)
  Sender: FDA-Public Use
  Company Number: US-002147023-NVSC2023US075250

PATIENT
  Age: 15 Year
  Sex: Male
  Weight: 52.7 kg

DRUGS (6)
  1. ADAKVEO [Suspect]
     Active Substance: CRIZANLIZUMAB-TMCA
     Indication: Sickle cell anaemia with crisis
     Dosage: 5 MG, Q2W
     Route: 042
     Dates: start: 20190603
  2. OXYCODONE [Concomitant]
     Active Substance: OXYCODONE
     Indication: Sickle cell anaemia with crisis
     Dosage: UNK
     Route: 065
     Dates: start: 20141224
  3. HYDROXYUREA [Concomitant]
     Active Substance: HYDROXYUREA
     Indication: Sickle cell anaemia with crisis
     Dosage: UNK
     Route: 065
     Dates: start: 20161212
  4. WELLBUTRIN SR [Concomitant]
     Active Substance: BUPROPION HYDROCHLORIDE
     Indication: Depression
     Dosage: UNK
     Route: 065
     Dates: start: 20180523
  5. FENTANYL [Concomitant]
     Active Substance: FENTANYL
     Indication: Sickle cell anaemia with crisis
     Dosage: UNK
     Route: 065
     Dates: start: 20190617, end: 20190625
  6. TORADOL [Concomitant]
     Active Substance: KETOROLAC TROMETHAMINE
     Indication: Sickle cell anaemia with crisis
     Dosage: UNK
     Route: 065
     Dates: start: 20190617, end: 20190622

REACTIONS (1)
  - Infusion related reaction [Recovered/Resolved]

NARRATIVE: CASE EVENT DATE: 20190617
